FAERS Safety Report 24615471 (Version 1)
Quarter: 2024Q4

REPORT INFORMATION
  Report Type: Spontaneous
  Country: US (occurrence: US)
  Receive Date: 20241113
  Receipt Date: 20241113
  Transmission Date: 20250115
  Serious: No
  Sender: SANOFI AVENTIS
  Company Number: US-SA-2024SA324424

PATIENT
  Age: 36 Year
  Sex: Female
  Weight: 69.55 kg

DRUGS (4)
  1. DUPIXENT [Suspect]
     Active Substance: DUPILUMAB
     Indication: Illness
     Dosage: 300 MG, QW
     Route: 058
  2. PRENATAL MULTIVITAMIN + DHA [Concomitant]
  3. PROGESTERONE [Concomitant]
     Active Substance: PROGESTERONE
  4. ESTRADIOL BENZOATE [Concomitant]
     Active Substance: ESTRADIOL BENZOATE

REACTIONS (2)
  - Exposure during pregnancy [Unknown]
  - Product use in unapproved indication [Unknown]
